FAERS Safety Report 20331415 (Version 1)
Quarter: 2022Q1

REPORT INFORMATION
  Report Type: Spontaneous
  Country: US (occurrence: None)
  Receive Date: 20220112
  Receipt Date: 20220112
  Transmission Date: 20220423
  Serious: Yes (Death)
  Sender: FDA-Public Use
  Company Number: None

PATIENT
  Sex: Male

DRUGS (2)
  1. METHOTREXATE [Suspect]
     Active Substance: METHOTREXATE
     Indication: Leukaemia
     Dosage: FREQUENCY : WEEKLY;?
     Route: 048
     Dates: start: 20210726, end: 20211206
  2. TRETINOIN [Suspect]
     Active Substance: TRETINOIN
     Indication: Leukaemia
     Dosage: FREQUENCY : EVERY 12 HOURS;?
     Route: 048
     Dates: start: 20211022, end: 20211206

REACTIONS (1)
  - Death [None]
